FAERS Safety Report 11308785 (Version 3)
Quarter: 2016Q1

REPORT INFORMATION
  Report Type: Report from Study
  Country: US (occurrence: US)
  Receive Date: 20150724
  Receipt Date: 20160205
  Transmission Date: 20160525
  Serious: Yes (Hospitalization, Other)
  Sender: FDA-Public Use
  Company Number: US-AMGEN-USASP2015073832

PATIENT
  Age: 73 Year
  Sex: Female

DRUGS (1)
  1. ENBREL [Suspect]
     Active Substance: ETANERCEPT
     Indication: RHEUMATOID ARTHRITIS
     Dosage: UNK
     Route: 065
     Dates: start: 201411

REACTIONS (20)
  - Aortic aneurysm [Unknown]
  - Injection site mass [Unknown]
  - Lower respiratory tract infection bacterial [Unknown]
  - Surgery [Unknown]
  - Malaise [Unknown]
  - Insomnia [Not Recovered/Not Resolved]
  - Hernia [Unknown]
  - Gait disturbance [Unknown]
  - Spinal disorder [Unknown]
  - Procedural complication [Unknown]
  - Inflammation [Unknown]
  - Injection site erythema [Unknown]
  - Fall [Unknown]
  - Catheterisation cardiac [Unknown]
  - Aortic disorder [Unknown]
  - Musculoskeletal discomfort [Unknown]
  - Mobility decreased [Not Recovered/Not Resolved]
  - Infection [Unknown]
  - Arterial haemorrhage [Unknown]
  - Pain [Unknown]
